FAERS Safety Report 11974478 (Version 1)
Quarter: 2016Q1

REPORT INFORMATION
  Report Type: Report from Study
  Country: US (occurrence: US)
  Receive Date: 20160128
  Receipt Date: 20160128
  Transmission Date: 20160526
  Serious: No
  Sender: FDA-Public Use
  Company Number: US-ABBVIE-15K-163-1395778-00

PATIENT
  Sex: Male

DRUGS (1)
  1. HUMIRA [Suspect]
     Active Substance: ADALIMUMAB
     Indication: PSORIASIS
     Route: 058
     Dates: start: 201503, end: 201504

REACTIONS (4)
  - Productive cough [Unknown]
  - Upper respiratory tract infection [Recovering/Resolving]
  - Sputum discoloured [Unknown]
  - Cough [Unknown]

NARRATIVE: CASE EVENT DATE: 2015
